FAERS Safety Report 6767245-7 (Version None)
Quarter: 2010Q2

REPORT INFORMATION
  Report Type: 
  Country: None (occurrence: None)
  Receive Date: 20100614
  Receipt Date: 20100601
  Transmission Date: 20101027
  Serious: Yes (Other)
  Sender: FDA-Public Use
  Company Number: GB-JNJFOC-20100603602

PATIENT
  Sex: Male
  Weight: 90 kg

DRUGS (6)
  1. REOPRO [Suspect]
     Indication: ACUTE CORONARY SYNDROME
     Dosage: 22.5 ML
     Route: 042
  2. ACETYLSALICYLIC ACID [Concomitant]
  3. CLOPIDOGREL [Concomitant]
  4. LANSOPRAZOLE [Concomitant]
  5. ATORVASTATIN [Concomitant]
  6. BISOPROLOL [Concomitant]

REACTIONS (1)
  - OVERDOSE [None]
